FAERS Safety Report 13939393 (Version 3)
Quarter: 2017Q4

REPORT INFORMATION
  Report Type: Spontaneous
  Country: US (occurrence: US)
  Receive Date: 20170906
  Receipt Date: 20171031
  Transmission Date: 20180320
  Serious: Yes (Other)
  Sender: FDA-Public Use
  Company Number: US-NOVOPROD-561617

PATIENT
  Age: 79 Year
  Sex: Female
  Weight: 63.95 kg

DRUGS (2)
  1. VICTOZA [Suspect]
     Active Substance: LIRAGLUTIDE
     Dosage: VARIES DOSE BETWEEN 0.6 MG DAILY AND 1.2 MG DAILY DEPENDING ON BLOOD SUGAR
     Route: 058
  2. VICTOZA [Suspect]
     Active Substance: LIRAGLUTIDE
     Indication: TYPE 2 DIABETES MELLITUS
     Dosage: 1.2 MG, QD
     Route: 058

REACTIONS (2)
  - Age-related macular degeneration [Not Recovered/Not Resolved]
  - Intentional product misuse [Not Recovered/Not Resolved]
